FAERS Safety Report 18593532 (Version 1)
Quarter: 2020Q4

REPORT INFORMATION
  Report Type: Spontaneous
  Country: US (occurrence: US)
  Receive Date: 20201209
  Receipt Date: 20201209
  Transmission Date: 20210114
  Serious: Yes (Other)
  Sender: FDA-Public Use
  Company Number: US-LUNDBECK-DKLU3024801

PATIENT
  Age: 74 Year
  Sex: Female

DRUGS (6)
  1. NORTHERA [Suspect]
     Active Substance: DROXIDOPA
     Indication: ORTHOSTATIC HYPOTENSION
     Dosage: DAY1 AND 2- TAKE 1 CAPSULE (100MG) IN THE MORNING, MIDDAY AND 3 HOURS BEFORE BED, DAY 3 TO 4- TAKE 2
     Route: 048
  2. NORTHERA [Suspect]
     Active Substance: DROXIDOPA
     Dosage: DAY1 AND 2- TAKE 1 CAPSULE (100MG) IN THE MORNING, MIDDAY AND 3 HOURS BEFORE BED, DAY 3 TO 4- TAKE 2
     Route: 048
  3. NORTHERA [Suspect]
     Active Substance: DROXIDOPA
     Dosage: DAY1 AND 2- TAKE 1 CAPSULE (100MG) IN THE MORNING, MIDDAY AND 3 HOURS BEFORE BED, DAY 3 TO 4- TAKE 2
     Route: 048
  4. NORTHERA [Suspect]
     Active Substance: DROXIDOPA
     Dosage: DAY1 AND 2- TAKE 1 CAPSULE (100MG) IN THE MORNING, MIDDAY AND 3 HOURS BEFORE BED, DAY 3 TO 4- TAKE 2
     Route: 048
  5. NORTHERA [Suspect]
     Active Substance: DROXIDOPA
     Dosage: DAY1 AND 2- TAKE 1 CAPSULE (100MG) IN THE MORNING, MIDDAY AND 3 HOURS BEFORE BED, DAY 3 TO 4- TAKE 2
     Route: 048
  6. NORTHERA [Suspect]
     Active Substance: DROXIDOPA
     Dosage: DAY1 AND 2- TAKE 1 CAPSULE (100MG) IN THE MORNING, MIDDAY AND 3 HOURS BEFORE BED, DAY 3 TO 4- TAKE 2
     Route: 048

REACTIONS (2)
  - Malaise [Unknown]
  - Neoplasm malignant [Unknown]
